FAERS Safety Report 10754704 (Version 1)
Quarter: 2015Q1

REPORT INFORMATION
  Report Type: Spontaneous
  Country: CZ (occurrence: CZ)
  Receive Date: 20150202
  Receipt Date: 20150202
  Transmission Date: 20150721
  Serious: Yes (Hospitalization)
  Sender: FDA-Public Use
  Company Number: CZ-SA-2015SA009238

PATIENT
  Age: 78 Year
  Sex: Male
  Weight: 87 kg

DRUGS (12)
  1. FURON [Concomitant]
     Active Substance: FUROSEMIDE
     Dosage: STRENGTH: 40 MG, DOSE: 1-1/2-0
  2. LANTUS [Suspect]
     Active Substance: INSULIN GLARGINE
     Dosage: INCREASED DOSE OF INSULIN GLARGINE.
     Route: 065
  3. LANZUL [Concomitant]
     Active Substance: LANSOPRAZOLE
     Dosage: STRENGTH: 30 MG
  4. SORBIMON [Concomitant]
     Dosage: STRENGTH: 20
  5. PREDUCTAL [Concomitant]
     Active Substance: TRIMETAZIDINE DIHYDROCHLORIDE
  6. SIMVASTATIN. [Concomitant]
     Active Substance: SIMVASTATIN
     Dosage: STRENGTH: 20 MG
  7. CORYOL [Concomitant]
     Active Substance: CARVEDILOL
     Dosage: STRENGTH: 6.25
  8. GLURENORM [Concomitant]
  9. ANOPYRIN [Concomitant]
     Active Substance: ASPIRIN
     Dosage: STRENGTH: 100 MG
  10. PRESTANCE [Concomitant]
     Dosage: STRENGTH: 5MG
  11. ALLOPURINOL. [Concomitant]
     Active Substance: ALLOPURINOL
  12. VEROSPIRON [Concomitant]
     Active Substance: SPIRONOLACTONE

REACTIONS (1)
  - Diabetic metabolic decompensation [Recovered/Resolved]

NARRATIVE: CASE EVENT DATE: 20140529
